FAERS Safety Report 10284757 (Version 1)
Quarter: 2014Q3

REPORT INFORMATION
  Report Type: Spontaneous
  Country: US (occurrence: None)
  Receive Date: 20140703
  Receipt Date: 20140703
  Transmission Date: 20150326
  Serious: No
  Sender: FDA-Public Use
  Company Number: None

PATIENT
  Age: 35 Year
  Sex: Male

DRUGS (4)
  1. FISH OIL [Concomitant]
     Active Substance: FISH OIL
  2. AVENA SATIVA COMPOUND [Suspect]
     Active Substance: HOMEOPATHICS
     Indication: AGITATION
     Dosage: BY MOUTH 15-20 DROPS 3-4 TIMES/DAY
     Route: 048
  3. MVI [Concomitant]
     Active Substance: VITAMINS
  4. AVENA SATIVA COMPOUND [Suspect]
     Active Substance: HOMEOPATHICS
     Indication: NERVOUSNESS
     Dosage: BY MOUTH 15-20 DROPS 3-4 TIMES/DAY
     Route: 048

REACTIONS (4)
  - Product formulation issue [None]
  - Hypersensitivity [None]
  - Rash [None]
  - Pruritus [None]

NARRATIVE: CASE EVENT DATE: 20140425
